FAERS Safety Report 9630729 (Version 1)
Quarter: 2013Q4

REPORT INFORMATION
  Report Type: Spontaneous
  Country: US (occurrence: None)
  Receive Date: 20131016
  Receipt Date: 20131016
  Transmission Date: 20140711
  Serious: Yes (Hospitalization)
  Sender: FDA-Public Use
  Company Number: None

PATIENT
  Age: 76 Year
  Sex: Female
  Weight: 59.1 kg

DRUGS (2)
  1. SCOPOLAMINE, TRANSDERMAL [Suspect]
     Indication: PROPHYLAXIS OF NAUSEA AND VOMITING
  2. SCOPOLAMINE, TRANSDERMAL [Suspect]
     Indication: PROPHYLAXIS OF NAUSEA AND VOMITING

REACTIONS (3)
  - Delusion [None]
  - Hallucination [None]
  - Alopecia [None]
